FAERS Safety Report 23113214 (Version 1)
Quarter: 2023Q4

REPORT INFORMATION
  Report Type: Spontaneous
  Country: DE (occurrence: DE)
  Receive Date: 20231027
  Receipt Date: 20231027
  Transmission Date: 20240109
  Serious: No
  Sender: FDA-Public Use
  Company Number: DE-UCBSA-2023049817

PATIENT
  Age: 65 Year
  Sex: Female

DRUGS (2)
  1. NEUPRO [Suspect]
     Active Substance: ROTIGOTINE
     Indication: Restless legs syndrome
     Dosage: 2 MILLIGRAM, ONCE DAILY (QD)
     Dates: start: 202310, end: 202310
  2. NEUPRO [Suspect]
     Active Substance: ROTIGOTINE
     Dosage: 3 MILLIGRAM, ONCE DAILY (QD)
     Dates: start: 202310

REACTIONS (6)
  - Hyperhidrosis [Not Recovered/Not Resolved]
  - Muscle twitching [Not Recovered/Not Resolved]
  - Insomnia [Not Recovered/Not Resolved]
  - Restless legs syndrome [Not Recovered/Not Resolved]
  - Product adhesion issue [Unknown]
  - Drug ineffective [Unknown]

NARRATIVE: CASE EVENT DATE: 20231001
